FAERS Safety Report 14685441 (Version 3)
Quarter: 2019Q3

REPORT INFORMATION
  Report Type: Spontaneous
  Country: US (occurrence: US)
  Receive Date: 20180327
  Receipt Date: 20190704
  Transmission Date: 20191004
  Serious: No
  Sender: FDA-Public Use
  Company Number: US-ASTRAZENECA-2018SE36635

PATIENT
  Sex: Female

DRUGS (3)
  1. BYDUREON [Suspect]
     Active Substance: EXENATIDE
     Route: 065
     Dates: start: 20180321
  2. BYDUREON [Suspect]
     Active Substance: EXENATIDE
     Route: 065
  3. BYETTA [Suspect]
     Active Substance: EXENATIDE
     Dosage: TWICE DAILY
     Route: 065

REACTIONS (8)
  - Blood glucose fluctuation [Unknown]
  - Vision blurred [Unknown]
  - Blood glucose increased [Unknown]
  - Injection site pruritus [Unknown]
  - Dry mouth [Unknown]
  - Dizziness [Unknown]
  - Incorrect dose administered [Unknown]
  - Device issue [Unknown]
